FAERS Safety Report 10190785 (Version 5)
Quarter: 2014Q3

REPORT INFORMATION
  Report Type: Report from Study
  Country: DE (occurrence: DE)
  Receive Date: 20140523
  Receipt Date: 20140718
  Transmission Date: 20150326
  Serious: Yes (Hospitalization)
  Sender: FDA-Public Use
  Company Number: DE-ROCHE-1399624

PATIENT
  Age: 84 Year
  Sex: Male
  Weight: 69.5 kg

DRUGS (11)
  1. FINASTERID [Concomitant]
     Route: 048
  2. OBINUTUZUMAB [Suspect]
     Active Substance: OBINUTUZUMAB
     Indication: CHRONIC LYMPHOCYTIC LEUKAEMIA
     Dosage: DATE OF LAST DOSE PRIOR TO SAE: 06/MAY/2014, DAYS 1/2 (SPLIT DOSE)
     Route: 042
     Dates: start: 20140505
  3. OMEPRAZOL [Concomitant]
     Active Substance: OMEPRAZOLE
     Route: 048
  4. CHLORAMBUCIL [Suspect]
     Active Substance: CHLORAMBUCIL
     Indication: CHRONIC LYMPHOCYTIC LEUKAEMIA
     Dosage: DATE OF LAST DOSE PRIOR TO SAE: 06/MAY/2014, ADMINISTERED 50% OF THE PLANNED DOSE BECAUSE OF COMORBI
     Route: 048
     Dates: start: 20140506
  5. ASS100 [Concomitant]
     Active Substance: PENTOXIFYLLINE
     Route: 048
  6. INEGY [Concomitant]
     Active Substance: EZETIMIBE\SIMVASTATIN
     Route: 048
  7. LEVOTHYROXIN [Concomitant]
     Active Substance: LEVOTHYROXINE
     Route: 048
  8. TAMSULOSIN [Concomitant]
     Active Substance: TAMSULOSIN
     Route: 048
  9. BISOPROLOL [Concomitant]
     Active Substance: BISOPROLOL
     Route: 048
  10. LINOLACORT HYDRO [Concomitant]
     Route: 065
     Dates: start: 20140526
  11. CETIRIZIN-CT [Concomitant]
     Route: 048
     Dates: start: 20140526

REACTIONS (1)
  - Pneumonia [Recovered/Resolved]

NARRATIVE: CASE EVENT DATE: 20140507
